FAERS Safety Report 10202459 (Version 1)
Quarter: 2014Q2

REPORT INFORMATION
  Report Type: Report from Study
  Country: US (occurrence: US)
  Receive Date: 20140528
  Receipt Date: 20140528
  Transmission Date: 20141212
  Serious: Yes (Hospitalization, Other)
  Sender: FDA-Public Use
  Company Number: US-ABBVIE-14P-163-1240943-00

PATIENT
  Age: 31 Year
  Sex: Female

DRUGS (8)
  1. HUMIRA [Suspect]
     Indication: CROHN^S DISEASE
     Dosage: DAY 1
     Dates: start: 200909, end: 200909
  2. HUMIRA [Suspect]
     Dosage: DAY 15
  3. HUMIRA [Suspect]
     Dates: end: 201005
  4. HUMIRA [Suspect]
     Dosage: LOADING DOSE
     Dates: start: 20140516
  5. ASACOL [Suspect]
     Indication: PRODUCT USED FOR UNKNOWN INDICATION
     Dates: start: 201211
  6. LINZESS [Concomitant]
     Indication: HERNIA
  7. LINZESS [Concomitant]
     Indication: BOWEL MOVEMENT IRREGULARITY
  8. OMEPRAZOLE [Concomitant]
     Indication: GASTROOESOPHAGEAL REFLUX DISEASE

REACTIONS (22)
  - Hernia [Not Recovered/Not Resolved]
  - Infection [Unknown]
  - Muscular weakness [Unknown]
  - Pancreatitis [Unknown]
  - Abdominal pain [Unknown]
  - Arthralgia [Unknown]
  - Iritis [Unknown]
  - Device issue [Unknown]
  - Back pain [Unknown]
  - Surgery [Unknown]
  - Surgery [Unknown]
  - Surgery [Unknown]
  - Surgery [Unknown]
  - Surgery [Unknown]
  - Surgery [Unknown]
  - Surgery [Unknown]
  - Surgery [Unknown]
  - Surgery [Unknown]
  - Surgery [Unknown]
  - Surgery [Unknown]
  - Surgery [Unknown]
  - Surgery [Unknown]
